FAERS Safety Report 14551413 (Version 1)
Quarter: 2018Q1

REPORT INFORMATION
  Report Type: Other
  Country: DK (occurrence: DK)
  Receive Date: 20180220
  Receipt Date: 20180220
  Transmission Date: 20180509
  Serious: Yes (Hospitalization, Disabling, Other)
  Sender: FDA-Public Use
  Company Number: DK-MACLEODS PHARMACEUTICALS US LTD-MAC2018009923

PATIENT

DRUGS (1)
  1. SILDENAFIL. [Suspect]
     Active Substance: SILDENAFIL
     Indication: ERECTILE DYSFUNCTION
     Dosage: 25 MG,  DOSAGE: THE PATIENT TOOK 1/2 TABLET AS NEEDED, STRENGTH: 50 MG, THE 09 FEB 2017 PATIENT HAD,
     Route: 048
     Dates: start: 20161115, end: 20170209

REACTIONS (3)
  - Penile operation [Recovered/Resolved]
  - Erectile dysfunction [Not Recovered/Not Resolved]
  - Priapism [Recovered/Resolved]

NARRATIVE: CASE EVENT DATE: 20170209
